FAERS Safety Report 8508536-9 (Version None)
Quarter: 2012Q3

REPORT INFORMATION
  Report Type: 
  Country: None (occurrence: None)
  Receive Date: 20120713
  Receipt Date: 20120711
  Transmission Date: 20120928
  Serious: Yes (Disabling, Other)
  Sender: FDA-Public Use
  Company Number: US-PFIZER INC-2012167357

PATIENT
  Sex: Female
  Weight: 77.098 kg

DRUGS (6)
  1. JANUVIA [Concomitant]
     Indication: DIABETES MELLITUS
     Dosage: 100 MG, UNK
  2. DEXLANSOPRAZOLE [Concomitant]
     Dosage: 60 MG, 2X/DAY
  3. ENALAPRIL [Concomitant]
     Indication: HYPERTENSION
     Dosage: 20 MG, 1X/DAY
  4. ZOLOFT [Suspect]
     Dosage: 100 MG, 1X/DAY
     Route: 048
  5. ZOLOFT [Suspect]
     Indication: DEPRESSION
     Dosage: 100 MG, 1X/DAY
     Route: 048
     Dates: start: 20010101
  6. LEVOXYL [Concomitant]
     Indication: HYPERTHYROIDISM
     Dosage: 0.125 MG, 1X/DAY

REACTIONS (4)
  - GLAUCOMA [None]
  - ABNORMAL DREAMS [None]
  - BLINDNESS UNILATERAL [None]
  - FEELING ABNORMAL [None]
